FAERS Safety Report 9528278 (Version 2)
Quarter: 2013Q3

REPORT INFORMATION
  Report Type: Report from Study
  Country: CA (occurrence: CA)
  Receive Date: 20130917
  Receipt Date: 20130924
  Transmission Date: 20140515
  Serious: Yes (Other)
  Sender: FDA-Public Use
  Company Number: CA-ABBVIE-13P-028-1145066-00

PATIENT
  Sex: Female
  Weight: 63.56 kg

DRUGS (3)
  1. HUMIRA [Suspect]
     Indication: ANKYLOSING SPONDYLITIS
     Route: 058
     Dates: start: 20110920
  2. HUMIRA [Suspect]
     Route: 058
     Dates: start: 201304
  3. MEFENAMIC [Concomitant]
     Indication: BACK PAIN
     Route: 048
     Dates: start: 20130813

REACTIONS (2)
  - Renal failure [Recovered/Resolved]
  - Liver disorder [Recovered/Resolved]
